FAERS Safety Report 20588887 (Version 1)
Quarter: 2022Q1

REPORT INFORMATION
  Report Type: Spontaneous
  Country: CA (occurrence: CA)
  Receive Date: 20220314
  Receipt Date: 20220314
  Transmission Date: 20220423
  Serious: Yes (Hospitalization)
  Sender: FDA-Public Use
  Company Number: CA-TEVA-2022-CA-2015508

PATIENT
  Age: 86 Year
  Sex: Male
  Weight: 100 kg

DRUGS (11)
  1. CEPHALEXIN [Suspect]
     Active Substance: CEPHALEXIN
     Dosage: 2000 MILLIGRAM DAILY;
     Route: 048
  2. CANDESARTAN [Concomitant]
     Active Substance: CANDESARTAN
  3. ELIQUIS [Concomitant]
     Active Substance: APIXABAN
  4. LACTULOSE [Concomitant]
     Active Substance: LACTULOSE
  5. MUPIROCIN [Concomitant]
     Active Substance: MUPIROCIN
  6. MYRBETRIQ [Concomitant]
     Active Substance: MIRABEGRON
  7. PANTOPRAZOLE [Concomitant]
     Active Substance: PANTOPRAZOLE
  8. ROSUVASTATIN [Concomitant]
     Active Substance: ROSUVASTATIN
     Route: 065
  9. TAMSULOSIN [Concomitant]
     Active Substance: TAMSULOSIN
  10. TOVIAZ [Concomitant]
     Active Substance: FESOTERODINE FUMARATE
  11. VITAMIN D3 [Concomitant]
     Active Substance: CHOLECALCIFEROL

REACTIONS (4)
  - Asthenia [Recovering/Resolving]
  - Gait inability [Recovering/Resolving]
  - Muscular weakness [Recovering/Resolving]
  - Clostridium test positive [Recovering/Resolving]
